FAERS Safety Report 18807122 (Version 1)
Quarter: 2021Q1

REPORT INFORMATION
  Report Type: Spontaneous
  Country: US (occurrence: US)
  Receive Date: 20210129
  Receipt Date: 20210129
  Transmission Date: 20210419
  Serious: Yes (Other)
  Sender: FDA-Public Use
  Company Number: US-PFIZER INC-2021072038

PATIENT
  Age: 62 Year
  Sex: Female
  Weight: 63.5 kg

DRUGS (3)
  1. ESTRING [Suspect]
     Active Substance: ESTRADIOL
     Indication: CYSTITIS
  2. PYRIDIUM [Concomitant]
     Active Substance: PHENAZOPYRIDINE
     Indication: NEPHROLITHIASIS
     Dosage: 100 MG, AS NEEDED
  3. ESTRING [Suspect]
     Active Substance: ESTRADIOL
     Indication: KIDNEY INFECTION
     Dosage: 2 MG(2MG; EVERY TWO MONTHS SHE THINKS)
     Dates: end: 201908

REACTIONS (6)
  - Kidney infection [Not Recovered/Not Resolved]
  - Disease recurrence [Not Recovered/Not Resolved]
  - Cystitis [Not Recovered/Not Resolved]
  - Migraine [Unknown]
  - Bruxism [Unknown]
  - Off label use [Unknown]
